FAERS Safety Report 22238644 (Version 1)
Quarter: 2023Q2

REPORT INFORMATION
  Report Type: Other
  Country: CN (occurrence: None)
  Receive Date: 20230421
  Receipt Date: 20230421
  Transmission Date: 20230721
  Serious: Yes (Other)
  Sender: FDA-Public Use
  Company Number: CN-ROCHE-3207165

PATIENT
  Age: 76 Year
  Sex: Male
  Weight: 78 kg

DRUGS (1)
  1. ALECENSA [Suspect]
     Active Substance: ALECTINIB HYDROCHLORIDE
     Indication: Lung neoplasm malignant
     Dosage: CAPSULES, 150MG*56CAPSULES*4 SMALL BOXES?1 DF= 1 CAPSULE
     Route: 048
     Dates: start: 20200214

REACTIONS (4)
  - Renal impairment [Unknown]
  - Blood uric acid increased [Recovering/Resolving]
  - Oedema [Recovered/Resolved]
  - Oedema peripheral [Unknown]
